FAERS Safety Report 5018870-5 (Version None)
Quarter: 2006Q2

REPORT INFORMATION
  Report Type: 
  Country: None (occurrence: None)
  Receive Date: 20060530
  Receipt Date: 20050718
  Transmission Date: 20061013
  Serious: Yes (Disabling)
  Sender: FDA-Public Use
  Company Number: 2005103550

PATIENT
  Age: 46 Year
  Sex: Female
  Weight: 46 kg

DRUGS (7)
  1. PREGABALIN (PREGABALIN) [Suspect]
     Indication: ABDOMINAL PAIN
     Dosage: 50 MG (25 MG, 2 IN 1 D), ORAL
     Route: 048
     Dates: start: 20050701, end: 20050705
  2. MEPERIDINE HCL [Concomitant]
  3. PROCHLORPERAZINE MALEATE [Concomitant]
  4. RANITIDINE HCL [Concomitant]
  5. MAGNESIUM TRISILICATE (MAGNESIUM TRISILICATE) [Concomitant]
  6. PHOSPHORUS (PHOSPHORUS) [Concomitant]
  7. NOVORAPID (INSULIN ASPART) [Concomitant]

REACTIONS (4)
  - COORDINATION ABNORMAL [None]
  - DIPLOPIA [None]
  - FEELING DRUNK [None]
  - SOMNOLENCE [None]
